FAERS Safety Report 24085777 (Version 1)
Quarter: 2024Q3

REPORT INFORMATION
  Report Type: Spontaneous
  Country: FR (occurrence: None)
  Receive Date: 20240712
  Receipt Date: 20240712
  Transmission Date: 20241017
  Serious: Yes (Hospitalization, Other)
  Sender: ASTRAZENECA
  Company Number: 2024A159488

PATIENT
  Age: 83 Year
  Sex: Male

DRUGS (1)
  1. DURVALUMAB [Suspect]
     Active Substance: DURVALUMAB
     Indication: Non-small cell lung cancer
     Dates: start: 20200810, end: 20201019

REACTIONS (12)
  - Metastases to central nervous system [Unknown]
  - Malignant neoplasm progression [Unknown]
  - Pneumonitis [Unknown]
  - Infection [Unknown]
  - Toxicity to various agents [Not Recovered/Not Resolved]
  - Neuropathy peripheral [Unknown]
  - Cough [Unknown]
  - Decreased appetite [Unknown]
  - Oesophagitis [Unknown]
  - Nausea [Unknown]
  - Vomiting [Unknown]
  - Diarrhoea [Unknown]
